FAERS Safety Report 9515728 (Version 3)
Quarter: 2014Q2

REPORT INFORMATION
  Report Type: Spontaneous
  Country: MX (occurrence: MX)
  Receive Date: 20130911
  Receipt Date: 20140409
  Transmission Date: 20141212
  Serious: Yes (Other)
  Sender: FDA-Public Use
  Company Number: MX-PFIZER INC-2013255153

PATIENT
  Age: 62 Year
  Sex: Female

DRUGS (1)
  1. DETRUSITOL [Suspect]
     Indication: VULVOVAGINAL DRYNESS
     Dosage: UNK

REACTIONS (1)
  - Haemorrhagic stroke [Unknown]
